FAERS Safety Report 8090243-0 (Version None)
Quarter: 2012Q1

REPORT INFORMATION
  Report Type: 
  Country: None (occurrence: None)
  Receive Date: 20120129
  Receipt Date: 20111111
  Transmission Date: 20120608
  Serious: No
  Sender: FDA-Public Use
  Company Number: US-ABBOTT-11P-163-0873416-00

PATIENT
  Sex: Female
  Weight: 68.1 kg

DRUGS (2)
  1. ATENOLOL [Concomitant]
     Indication: HYPERTENSION
  2. HUMIRA [Suspect]
     Indication: PSORIASIS
     Dates: start: 20111001

REACTIONS (5)
  - BLOOD GLUCOSE FLUCTUATION [None]
  - ANXIETY [None]
  - DIARRHOEA [None]
  - AMNESIA [None]
  - PAIN [None]
